FAERS Safety Report 5069480-5 (Version None)
Quarter: 2006Q3

REPORT INFORMATION
  Report Type: 
  Country: None (occurrence: None)
  Receive Date: 20060803
  Receipt Date: 20060728
  Transmission Date: 20061208
  Serious: Yes (Other)
  Sender: FDA-Public Use
  Company Number: 2006UW15296

PATIENT
  Age: 39 Year
  Sex: Female

DRUGS (3)
  1. SEROQUEL [Suspect]
     Indication: BIPOLAR I DISORDER
     Dosage: SEROQUEL STARTER PACK DOSE 100 MG TO 800 MG
     Route: 048
  2. ZOLOFT [Concomitant]
  3. SSRIS [Concomitant]

REACTIONS (4)
  - ANGER [None]
  - HOMICIDAL IDEATION [None]
  - MANIA [None]
  - REFUSAL OF TREATMENT BY PATIENT [None]
